FAERS Safety Report 14352830 (Version 2)
Quarter: 2018Q1

REPORT INFORMATION
  Report Type: Spontaneous
  Country: US (occurrence: US)
  Receive Date: 20180104
  Receipt Date: 20180110
  Transmission Date: 20180509
  Serious: Yes (Other)
  Sender: FDA-Public Use
  Company Number: US-PFIZER INC-2017548120

PATIENT
  Sex: Male

DRUGS (1)
  1. NORPACE [Suspect]
     Active Substance: DISOPYRAMIDE PHOSPHATE
     Indication: CARDIAC DISORDER
     Dosage: 150 MG, 2X/DAY

REACTIONS (4)
  - Insomnia [Recovering/Resolving]
  - Urinary retention [Not Recovered/Not Resolved]
  - Constipation [Recovering/Resolving]
  - Erectile dysfunction [Not Recovered/Not Resolved]
